FAERS Safety Report 5078858-5 (Version None)
Quarter: 2006Q3

REPORT INFORMATION
  Report Type: 
  Country: None (occurrence: None)
  Receive Date: 20060814
  Receipt Date: 20060803
  Transmission Date: 20061208
  Serious: Yes (Hospitalization, Other)
  Sender: FDA-Public Use
  Company Number: PHBS2006BR11807

PATIENT
  Age: 57 Year
  Sex: Male
  Weight: 80 kg

DRUGS (2)
  1. DIOVAN HCT [Suspect]
     Indication: CARDIOMEGALY
     Dosage: 80 VALS - 12.5 HCTZ MG/DAY
     Route: 048
  2. CARDIONIL [Suspect]
     Indication: CARDIOMEGALY
     Dosage: UNK, Q12H
     Route: 048

REACTIONS (5)
  - CONDITION AGGRAVATED [None]
  - HAEMORRHOID OPERATION [None]
  - PROSTATIC DISORDER [None]
  - PROSTATIC OPERATION [None]
  - URINARY RETENTION [None]
